FAERS Safety Report 6658767-8 (Version None)
Quarter: 2010Q1

REPORT INFORMATION
  Report Type: 
  Country: None (occurrence: None)
  Receive Date: 20100330
  Receipt Date: 20100322
  Transmission Date: 20100710
  Serious: Yes (Other)
  Sender: FDA-Public Use
  Company Number: GXKR2010CA03357

PATIENT
  Age: 71 Year
  Sex: Male

DRUGS (4)
  1. VERAPAMIL (NGX) [Suspect]
     Indication: ATRIAL FIBRILLATION
     Dosage: 240 MG, QD
  2. ATENOLOL [Concomitant]
     Dosage: 100 MG, QD
  3. METOPROLOL TARTRATE [Concomitant]
  4. CILAZAPRIL [Concomitant]
     Dosage: 5 MG, QD

REACTIONS (4)
  - ASTHENIA [None]
  - CARDIOGENIC SHOCK [None]
  - DYSPNOEA [None]
  - PALPITATIONS [None]
